FAERS Safety Report 6380535-5 (Version None)
Quarter: 2009Q3

REPORT INFORMATION
  Report Type: 
  Country: None (occurrence: None)
  Receive Date: 20090923
  Receipt Date: 20090908
  Transmission Date: 20100115
  Serious: Yes (Other)
  Sender: FDA-Public Use
  Company Number: 001720

PATIENT
  Age: 80 Year
  Sex: Male

DRUGS (3)
  1. NEUPRO [Suspect]
     Dosage: (2 MG), (6 MG)
  2. ROPINIROLE [Concomitant]
  3. LEVODOPA [Concomitant]

REACTIONS (1)
  - DRUG INEFFECTIVE [None]
